FAERS Safety Report 10519793 (Version 1)
Quarter: 2014Q4

REPORT INFORMATION
  Report Type: Report from Study
  Country: AU (occurrence: AU)
  Receive Date: 20141015
  Receipt Date: 20141015
  Transmission Date: 20150528
  Serious: Yes (Life-Threatening, Hospitalization)
  Sender: FDA-Public Use
  Company Number: AU-BRISTOL-MYERS SQUIBB COMPANY-21457288

PATIENT
  Age: 56 Year
  Sex: Male

DRUGS (12)
  1. ORENCIA [Suspect]
     Active Substance: ABATACEPT
     Indication: RHEUMATOID ARTHRITIS
     Route: 058
     Dates: start: 20120525
  2. FOSAMAX [Concomitant]
     Active Substance: ALENDRONATE SODIUM
  3. CALCIUM [Concomitant]
     Active Substance: CALCIUM
  4. VITAMIN D [Concomitant]
     Active Substance: CHOLECALCIFEROL
  5. ENDONE [Concomitant]
     Active Substance: OXYCODONE HYDROCHLORIDE
  6. PREDNISOLONE. [Concomitant]
     Active Substance: PREDNISOLONE
  7. PARACETAMOL [Concomitant]
     Active Substance: ACETAMINOPHEN
  8. FOLIC ACID. [Concomitant]
     Active Substance: FOLIC ACID
  9. METHOTREXATE [Concomitant]
     Active Substance: METHOTREXATE
  10. ASPIRIN. [Concomitant]
     Active Substance: ASPIRIN
  11. NIFEDIPINE. [Concomitant]
     Active Substance: NIFEDIPINE
  12. TRAMADOL [Concomitant]
     Active Substance: TRAMADOL

REACTIONS (2)
  - Leg amputation [Recovered/Resolved with Sequelae]
  - Septic embolus [Unknown]

NARRATIVE: CASE EVENT DATE: 20140317
